FAERS Safety Report 5452612-4 (Version None)
Quarter: 2007Q3

REPORT INFORMATION
  Report Type: 
  Country: None (occurrence: None)
  Receive Date: 20070914
  Receipt Date: 20070904
  Transmission Date: 20080115
  Serious: Yes (Death, Hospitalization)
  Sender: FDA-Public Use
  Company Number: AT-AMGEN-UK215239

PATIENT
  Sex: Male

DRUGS (11)
  1. PANITUMUMAB [Suspect]
     Indication: COLORECTAL CANCER
     Route: 042
     Dates: start: 20070117, end: 20070228
  2. IRINOTECAN HCL [Suspect]
  3. MEDROXYPROGESTERONE [Concomitant]
     Route: 048
     Dates: start: 20070116, end: 20070313
  4. NEUROBION [Concomitant]
     Route: 048
     Dates: start: 20070131, end: 20070313
  5. PANTOPRAZOLE SODIUM [Concomitant]
     Route: 048
     Dates: start: 20070228, end: 20070314
  6. DIMETICONE [Concomitant]
     Route: 048
     Dates: start: 20070228, end: 20070313
  7. SUCRALFATE [Concomitant]
     Route: 048
     Dates: start: 20070228, end: 20070311
  8. ZOFRAN [Concomitant]
     Route: 048
     Dates: start: 20070228, end: 20070311
  9. TROMCARDIN [Concomitant]
     Route: 042
     Dates: start: 20070312, end: 20070314
  10. LEUCOVORIN [Concomitant]
  11. FLUOROURACIL [Concomitant]

REACTIONS (2)
  - DIARRHOEA [None]
  - ILEUS [None]
